FAERS Safety Report 4451656-9 (Version None)
Quarter: 2004Q3

REPORT INFORMATION
  Report Type: 
  Country: None (occurrence: None)
  Receive Date: 20040915
  Receipt Date: 20040901
  Transmission Date: 20050211
  Serious: Yes (Hospitalization)
  Sender: FDA-Public Use
  Company Number: 04P-114-0272164-00

PATIENT
  Age: 61 Year
  Sex: Female
  Weight: 74 kg

DRUGS (16)
  1. HUMIRA [Suspect]
     Indication: RHEUMATOID ARTHRITIS
     Dosage: 40 MG, 1 IN 2 WK, SUBCUTANEOUS
     Route: 058
     Dates: start: 20040225
  2. LEFLUNOMIDE [Concomitant]
  3. CALCITRIOL [Concomitant]
  4. CALCIUM SAND [Concomitant]
  5. LISINOPRIL [Concomitant]
  6. PARACETAMOL [Concomitant]
  7. CODEINE [Concomitant]
  8. OMEPRAZOLE [Concomitant]
  9. FUROSEMIDE [Concomitant]
  10. B-KOMPLEX ^LECIVA^ [Concomitant]
  11. FUROSEMIDE [Concomitant]
  12. ACTRAPID [Concomitant]
  13. ISOPHANE INSULIN [Concomitant]
  14. PAMIDRONATE DISODIUM [Concomitant]
  15. DICLOFENAC [Concomitant]
  16. AMLODIPINE [Concomitant]

REACTIONS (3)
  - ABSCESS LIMB [None]
  - OSTEITIS [None]
  - TOE AMPUTATION [None]
